FAERS Safety Report 11653873 (Version 5)
Quarter: 2015Q4

REPORT INFORMATION
  Report Type: Spontaneous
  Country: US (occurrence: US)
  Receive Date: 20151022
  Receipt Date: 20151027
  Transmission Date: 20160304
  Serious: No
  Sender: FDA-Public Use
  Company Number: GXBR2015US000474

PATIENT
  Age: 57 Year
  Sex: Female
  Weight: 55.33 kg

DRUGS (2)
  1. SOLARAZE [Suspect]
     Active Substance: DICLOFENAC SODIUM
     Indication: ACTINIC KERATOSIS
     Dosage: 1 DF, QD
     Route: 061
     Dates: start: 20141231, end: 20150104
  2. PROZAC [Concomitant]
     Active Substance: FLUOXETINE HYDROCHLORIDE
     Indication: ANXIETY
     Dosage: 10 MG, QD
     Route: 048

REACTIONS (6)
  - Erythema [Recovering/Resolving]
  - Blister [Recovered/Resolved]
  - Wound [Recovered/Resolved]
  - Swelling face [Recovered/Resolved]
  - Influenza [Recovering/Resolving]
  - Secretion discharge [Recovered/Resolved]

NARRATIVE: CASE EVENT DATE: 20150103
